FAERS Safety Report 5678064-7 (Version None)
Quarter: 2008Q1

REPORT INFORMATION
  Report Type: 
  Country: None (occurrence: None)
  Receive Date: 20080319
  Receipt Date: 20080306
  Transmission Date: 20080703
  Serious: Yes (Hospitalization)
  Sender: FDA-Public Use
  Company Number: B0511796A

PATIENT
  Age: 87 Year
  Sex: Female
  Weight: 46.9019 kg

DRUGS (1)
  1. VALACICLOVIR HYDROCHLORIDE TABLET (VALACYCLOVIR HCL) [Suspect]
     Indication: HERPES ZOSTER
     Dosage: 3000 MG/ PER DAY/ORAL
     Route: 048
     Dates: start: 20070801, end: 20070901

REACTIONS (7)
  - BLOOD CREATINE INCREASED [None]
  - BLOOD UREA INCREASED [None]
  - DYSLALIA [None]
  - ENCEPHALOPATHY [None]
  - MUSCULAR WEAKNESS [None]
  - NAUSEA [None]
  - VOMITING [None]
